FAERS Safety Report 4348628-1 (Version None)
Quarter: 2004Q2

REPORT INFORMATION
  Report Type: 
  Country: None (occurrence: None)
  Receive Date: 20040423
  Receipt Date: 20040414
  Transmission Date: 20050107
  Serious: Yes (Disabling)
  Sender: FDA-Public Use
  Company Number: 2004AP02236

PATIENT
  Age: 50 Year
  Sex: Female

DRUGS (4)
  1. TENORMIN [Suspect]
     Indication: ARRHYTHMIA
     Dosage: 12.5 MG DAILY PO
     Route: 048
     Dates: start: 20031202, end: 20031231
  2. ASPIRIN [Concomitant]
  3. LIPITOR [Concomitant]
  4. RIOZABEN [Concomitant]

REACTIONS (2)
  - APHONIA [None]
  - DYSPHONIA [None]
